FAERS Safety Report 9792728 (Version 1)
Quarter: 2013Q4

REPORT INFORMATION
  Report Type: Spontaneous
  Country: US (occurrence: None)
  Receive Date: 20131231
  Receipt Date: 20131231
  Transmission Date: 20140711
  Serious: Yes (Other)
  Sender: FDA-Public Use
  Company Number: None

PATIENT
  Age: 69 Year
  Sex: Female
  Weight: 81.65 kg

DRUGS (5)
  1. MYRBETRIQ [Suspect]
     Indication: URINARY RETENTION
     Dates: start: 20130214, end: 20131202
  2. ASPIRIN [Concomitant]
  3. MAGNESIUM OXIDE [Concomitant]
  4. POTASSIUM CHLORIDE [Concomitant]
  5. FERROUS GLUCONATE [Concomitant]

REACTIONS (5)
  - Urinary tract infection [None]
  - Urinary retention [None]
  - Local swelling [None]
  - Local swelling [None]
  - Fluid retention [None]
